FAERS Safety Report 5563441-5 (Version None)
Quarter: 2007Q4

REPORT INFORMATION
  Report Type: 
  Country: None (occurrence: None)
  Receive Date: 20071217
  Receipt Date: 20070525
  Transmission Date: 20080405
  Serious: No
  Sender: FDA-Public Use
  Company Number: US-ASTRAZENECA-2007UW13057

PATIENT
  Age: 59 Year
  Sex: Female
  Weight: 67.6 kg

DRUGS (4)
  1. CRESTOR [Suspect]
     Indication: HYPERCHOLESTEROLAEMIA
     Route: 048
  2. PREVACID [Concomitant]
  3. ESTRATEST [Concomitant]
  4. SUCRALFATE [Concomitant]

REACTIONS (2)
  - CHILLS [None]
  - INSOMNIA [None]
